FAERS Safety Report 7176785-0 (Version None)
Quarter: 2010Q4

REPORT INFORMATION
  Report Type: 
  Country: None (occurrence: None)
  Receive Date: 20101207
  Receipt Date: 20101201
  Transmission Date: 20110411
  Serious: No
  Sender: FDA-Public Use
  Company Number: 2010006255

PATIENT
  Sex: Female

DRUGS (2)
  1. FENTORA [Suspect]
     Dosage: BU
     Route: 002
  2. HYDROCODONE [Suspect]
     Dosage: 2925 (325, 3 IN 8 HR)

REACTIONS (3)
  - CONTRAINDICATION TO MEDICAL TREATMENT [None]
  - DRUG PRESCRIBING ERROR [None]
  - WRONG TECHNIQUE IN DRUG USAGE PROCESS [None]
